FAERS Safety Report 9990342 (Version 1)
Quarter: 2014Q1

REPORT INFORMATION
  Report Type: Spontaneous
  Country: US (occurrence: None)
  Receive Date: 20140123
  Receipt Date: 20140123
  Transmission Date: 20141002
  Serious: Yes (Hospitalization)
  Sender: FDA-Public Use
  Company Number: UTC-034987

PATIENT
  Age: 30 Year
  Sex: Female
  Weight: 44.4 kg

DRUGS (3)
  1. REMODULIN (1 MILLIGRAM/MILLILITERS, INJECTION FOR INFUSION)(TREPROSTINIL SODIUM) [Suspect]
     Indication: COR PULMONALE CHRONIC
     Dosage: 33.12 UG/KG (0.023 UG/KG,L IN 1 MIN)
     Route: 058
     Dates: start: 20121121
  2. REVATIO (SILDENAFIL CITRATE)(UNKNOWN) [Concomitant]
  3. WARFARIN (UNKNOWN) [Concomitant]

REACTIONS (1)
  - Device related infection [None]
